FAERS Safety Report 9300243 (Version 3)
Quarter: 2013Q2

REPORT INFORMATION
  Report Type: Spontaneous
  Country: JP (occurrence: JP)
  Receive Date: 20130521
  Receipt Date: 20130625
  Transmission Date: 20140414
  Serious: Yes (Death)
  Sender: FDA-Public Use
  Company Number: PHHY2013JP021454

PATIENT
  Age: 89 Year
  Sex: Female

DRUGS (3)
  1. EXELON PATCH [Suspect]
     Indication: DEMENTIA ALZHEIMER^S TYPE
     Dosage: 4.5 MG, DAILY
     Route: 062
  2. EXELON PATCH [Suspect]
     Dosage: 9 MG, DAILY
     Route: 062
     Dates: start: 20130210, end: 20130226
  3. ARICEPT [Concomitant]
     Dosage: 3 MG, UNK
     Route: 048

REACTIONS (5)
  - Cerebral infarction [Fatal]
  - Aggression [Recovering/Resolving]
  - Restlessness [Unknown]
  - Dementia [Unknown]
  - Behavioural and psychiatric symptoms of dementia [Unknown]
